FAERS Safety Report 10215945 (Version 3)
Quarter: 2014Q4

REPORT INFORMATION
  Report Type: Report from Study
  Country: US (occurrence: US)
  Receive Date: 20140604
  Receipt Date: 20141126
  Transmission Date: 20150528
  Serious: Yes (Hospitalization)
  Sender: FDA-Public Use
  Company Number: 2014SP003011

PATIENT
  Age: 6 Year
  Sex: Male
  Weight: 22 kg

DRUGS (2)
  1. SM-13496 [Suspect]
     Active Substance: LURASIDONE HYDROCHLORIDE
     Indication: AUTISM
     Route: 048
     Dates: start: 20140807, end: 20140818
  2. BENADRYL [Concomitant]
     Active Substance: DIPHENHYDRAMINE HYDROCHLORIDE
     Indication: INSOMNIA
     Route: 048
     Dates: start: 20140802, end: 20140825

REACTIONS (1)
  - Irritability [Recovered/Resolved]

NARRATIVE: CASE EVENT DATE: 20140819
